FAERS Safety Report 20838349 (Version 2)
Quarter: 2022Q2

REPORT INFORMATION
  Report Type: Spontaneous
  Country: AR (occurrence: AR)
  Receive Date: 20220517
  Receipt Date: 20220624
  Transmission Date: 20220721
  Serious: No
  Sender: FDA-Public Use
  Company Number: AR-PFIZER INC-202200604598

PATIENT
  Age: 11 Year
  Sex: Female

DRUGS (1)
  1. GENOTROPIN [Suspect]
     Active Substance: SOMATROPIN
     Indication: Short stature
     Dosage: 1.5 TO 2 MG, WEEKLY (7 TIMES PER WEEK)
     Dates: start: 20210120

REACTIONS (4)
  - Blood glucose increased [Unknown]
  - Device issue [Unknown]
  - Device physical property issue [Unknown]
  - Device information output issue [Unknown]
